FAERS Safety Report 25105148 (Version 1)
Quarter: 2025Q1

REPORT INFORMATION
  Report Type: Spontaneous
  Country: EU (occurrence: EU)
  Receive Date: 20250321
  Receipt Date: 20250321
  Transmission Date: 20250409
  Serious: Yes (Hospitalization)
  Sender: ETHYPHARM
  Company Number: None

PATIENT

DRUGS (4)
  1. BUPRENORPHINE HYDROCHLORIDE [Suspect]
     Active Substance: BUPRENORPHINE HYDROCHLORIDE
     Route: 042
  2. COCAINE [Suspect]
     Active Substance: COCAINE
  3. ALCOHOL [Suspect]
     Active Substance: ALCOHOL
     Route: 048
  4. NICOTINE\TOBACCO LEAF [Suspect]
     Active Substance: NICOTINE\TOBACCO LEAF
     Route: 055

REACTIONS (8)
  - Drug abuse [Not Recovered/Not Resolved]
  - Product use issue [Unknown]
  - Injection site pain [Recovering/Resolving]
  - Injection site oedema [Recovering/Resolving]
  - Pyrexia [Recovered/Resolved]
  - Infective aneurysm [Recovered/Resolved]
  - Vascular graft [Recovered/Resolved]
  - Staphylococcal infection [Recovering/Resolving]

NARRATIVE: CASE EVENT DATE: 20231104
